FAERS Safety Report 13272331 (Version 1)
Quarter: 2017Q1

REPORT INFORMATION
  Report Type: Report from Study
  Country: MX (occurrence: MX)
  Receive Date: 20170227
  Receipt Date: 20170227
  Transmission Date: 20170428
  Serious: Yes (Other)
  Sender: FDA-Public Use
  Company Number: PHHY2016MX099199

PATIENT
  Sex: Female
  Weight: 46 kg

DRUGS (6)
  1. TRILEPTAL [Suspect]
     Active Substance: OXCARBAZEPINE
     Indication: CEREBRAL PALSY
     Dosage: 3 DF, QD
     Route: 065
  2. TOPAMAX [Concomitant]
     Active Substance: TOPIRAMATE
     Indication: CEREBRAL PALSY
     Dosage: 0.5 DF, QD (10 YEARS AGO)
     Route: 048
  3. TRILEPTAL [Suspect]
     Active Substance: OXCARBAZEPINE
     Indication: SEIZURE
     Dosage: 2.5 DF, (10 YEARS AGO)
     Route: 048
  4. TRILEPTAL [Suspect]
     Active Substance: OXCARBAZEPINE
     Indication: EPILEPSY
  5. KEPPRA [Concomitant]
     Active Substance: LEVETIRACETAM
     Indication: CEREBRAL PALSY
     Dosage: 3 DF, QD (10 YEARS AGO)
     Route: 048
  6. ATEMPERATOR//VALPROATE MAGNESIUM [Concomitant]
     Indication: CEREBRAL PALSY
     Dosage: 14 ML, QD (ONE YEAR AGO)
     Route: 048

REACTIONS (2)
  - Wrong technique in product usage process [Not Recovered/Not Resolved]
  - Cerebral palsy [Unknown]
